FAERS Safety Report 6641323-5 (Version None)
Quarter: 2010Q1

REPORT INFORMATION
  Report Type: 
  Country: None (occurrence: None)
  Receive Date: 20100318
  Receipt Date: 20100305
  Transmission Date: 20100710
  Serious: Yes (Death)
  Sender: FDA-Public Use
  Company Number: JP-ABBOTT-10P-087-0632683-00

PATIENT
  Age: 76 Year
  Sex: Male

DRUGS (5)
  1. LEUPROLIDE ACETATE [Suspect]
     Indication: PROSTATE CANCER STAGE IV
     Route: 058
     Dates: start: 20070508, end: 20071023
  2. LEUPROLIDE ACETATE [Suspect]
     Route: 058
     Dates: start: 20080408, end: 20090520
  3. BICALUTAMIDE [Concomitant]
     Indication: PROSTATE CANCER STAGE IV
     Route: 048
     Dates: start: 20070424, end: 20071024
  4. ESTRAMUSTINE PHOSPHATE SODIUM [Concomitant]
     Indication: PROSTATE CANCER STAGE IV
     Route: 048
     Dates: start: 20071024
  5. DOCETAXEL [Concomitant]
     Indication: PROSTATE CANCER STAGE IV
     Dates: start: 20080729, end: 20091022

REACTIONS (1)
  - PROSTATE CANCER [None]
